FAERS Safety Report 19722237 (Version 2)
Quarter: 2022Q3

REPORT INFORMATION
  Report Type: Spontaneous
  Country: US (occurrence: US)
  Receive Date: 20210819
  Receipt Date: 20220907
  Transmission Date: 20221027
  Serious: Yes (Other)
  Sender: FDA-Public Use
  Company Number: US-MYLANLABS-2021M1052045

PATIENT
  Age: 70 Year
  Sex: Male

DRUGS (5)
  1. VALSARTAN [Suspect]
     Active Substance: VALSARTAN
     Indication: Hypertension
     Dosage: 160 MILLIGRAM
     Route: 065
     Dates: start: 20181017, end: 20181219
  2. VALSARTAN [Suspect]
     Active Substance: VALSARTAN
     Indication: Hypertension
     Dosage: 160 MILLIGRAM
     Route: 065
     Dates: start: 20170217, end: 20170422
  3. VALSARTAN [Suspect]
     Active Substance: VALSARTAN
     Indication: Hypertension
     Dosage: 160 MILLIGRAM
     Route: 065
     Dates: start: 20170421, end: 20180809
  4. VALSARTAN [Suspect]
     Active Substance: VALSARTAN
     Indication: Hypertension
     Dosage: 160 MILLIGRAM
     Route: 065
     Dates: start: 20170830, end: 20180215
  5. VALSARTAN [Suspect]
     Active Substance: VALSARTAN
     Indication: Hypertension
     Dosage: 160 MILLIGRAM
     Route: 065
     Dates: start: 20180809, end: 20190419

REACTIONS (8)
  - Hepatic cancer [Unknown]
  - Bile duct cancer [Unknown]
  - Gastrointestinal carcinoma [Unknown]
  - Metastases to bone [Unknown]
  - Metastases to lung [Unknown]
  - Cholangiocarcinoma [Unknown]
  - Bone lesion [Unknown]
  - Lung disorder [Unknown]

NARRATIVE: CASE EVENT DATE: 20200515
